FAERS Safety Report 9668940 (Version 2)
Quarter: 2014Q1

REPORT INFORMATION
  Report Type: Spontaneous
  Country: CA (occurrence: CA)
  Receive Date: 20131105
  Receipt Date: 20140217
  Transmission Date: 20141002
  Serious: Yes (Other)
  Sender: FDA-Public Use
  Company Number: CA-ELI_LILLY_AND_COMPANY-CA201310008444

PATIENT
  Sex: 0

DRUGS (14)
  1. CYMBALTA [Suspect]
     Indication: DEPRESSION
     Dosage: 60 MG, QD
     Route: 064
  2. CYMBALTA [Suspect]
     Indication: DEPRESSION
     Dosage: 60 MG, QD
     Route: 064
  3. HYDROMORPHONE [Suspect]
     Indication: PRODUCT USED FOR UNKNOWN INDICATION
     Dosage: 30 MG, QD
     Route: 064
     Dates: end: 2012
  4. HYDROMORPHONE [Suspect]
     Indication: PRODUCT USED FOR UNKNOWN INDICATION
     Dosage: 30 MG, QD
     Route: 064
     Dates: end: 2012
  5. SUBOXONE [Suspect]
     Indication: DRUG DEPENDENCE
     Dosage: 12 MG, QD
     Route: 064
     Dates: end: 20121217
  6. SUBOXONE [Suspect]
     Indication: DRUG DEPENDENCE
     Dosage: 12 MG, QD
     Route: 064
     Dates: end: 20121217
  7. SUBOXONE [Suspect]
     Dosage: 12 MG, QD
     Route: 064
  8. SUBOXONE [Suspect]
     Dosage: 12 MG, QD
     Route: 064
  9. SUBUTEX [Suspect]
     Indication: DRUG DEPENDENCE
     Dosage: 12 MG, QD
     Route: 064
     Dates: end: 2013
  10. SUBUTEX [Suspect]
     Indication: DRUG DEPENDENCE
     Dosage: 12 MG, QD
     Route: 064
     Dates: end: 2013
  11. TECTA [Suspect]
     Indication: GASTROOESOPHAGEAL REFLUX DISEASE
     Dosage: 40 MG, QD
     Route: 064
  12. TECTA [Suspect]
     Indication: GASTROOESOPHAGEAL REFLUX DISEASE
     Dosage: 40 MG, QD
     Route: 064
  13. NICOTINE [Suspect]
     Indication: PRODUCT USED FOR UNKNOWN INDICATION
     Dosage: 10 DF, QD
     Route: 064
     Dates: end: 2013
  14. NICOTINE [Suspect]
     Indication: PRODUCT USED FOR UNKNOWN INDICATION
     Dosage: 10 DF, QD
     Route: 064
     Dates: end: 2013

REACTIONS (5)
  - Premature baby [Recovered/Resolved]
  - Low birth weight baby [Unknown]
  - Drug withdrawal syndrome neonatal [Unknown]
  - Foetal exposure during pregnancy [Recovered/Resolved]
  - Exposure during breast feeding [Unknown]
